FAERS Safety Report 15494776 (Version 1)
Quarter: 2018Q4

REPORT INFORMATION
  Report Type: Report from Study
  Country: IL (occurrence: IL)
  Receive Date: 20181012
  Receipt Date: 20181012
  Transmission Date: 20190205
  Serious: Yes (Hospitalization, Other)
  Sender: FDA-Public Use
  Company Number: PHHY2018IL120785

PATIENT
  Sex: Male
  Weight: 2.1 kg

DRUGS (7)
  1. MULTI-VIT [Concomitant]
     Active Substance: VITAMINS
     Indication: FOETAL EXPOSURE DURING PREGNANCY
     Route: 065
  2. VITAMIN D [Concomitant]
     Active Substance: CHOLECALCIFEROL
     Indication: FOETAL EXPOSURE DURING PREGNANCY
     Route: 065
  3. IRON [Concomitant]
     Active Substance: IRON
     Indication: FOETAL EXPOSURE DURING PREGNANCY
     Route: 065
  4. SANDOSTATIN LAR DEPOT [Suspect]
     Active Substance: OCTREOTIDE ACETATE
     Indication: FOETAL EXPOSURE DURING PREGNANCY
     Dosage: FOETAL DRUG EXPOSURE VIA MOTHER: 30 MG QMO
     Route: 065
  5. FOLIC ACID. [Concomitant]
     Active Substance: FOLIC ACID
     Indication: FOETAL EXPOSURE DURING PREGNANCY
     Route: 065
  6. DOSTINEX [Concomitant]
     Active Substance: CABERGOLINE
     Indication: FOETAL EXPOSURE DURING PREGNANCY
     Route: 065
  7. CALCIUM [Concomitant]
     Active Substance: CALCIUM
     Indication: FOETAL EXPOSURE DURING PREGNANCY
     Route: 065

REACTIONS (5)
  - Developmental delay [Unknown]
  - Foetal exposure during pregnancy [Unknown]
  - Pyrexia [Recovered/Resolved]
  - Viral infection [Recovered/Resolved]
  - Low birth weight baby [Unknown]
